FAERS Safety Report 6494727-8 (Version None)
Quarter: 2009Q4

REPORT INFORMATION
  Report Type: 
  Country: None (occurrence: None)
  Receive Date: 20091214
  Receipt Date: 20090319
  Transmission Date: 20100525
  Serious: No
  Sender: FDA-Public Use
  Company Number: US-BRISTOL-MYERS SQUIBB COMPANY-14551493

PATIENT
  Age: 50 Year
  Sex: Female
  Weight: 63 kg

DRUGS (9)
  1. ABILIFY [Suspect]
     Indication: DEPRESSION
     Dosage: STARTED AT INCREASED TO 7.5 MG; DECREASED BACK TO 5 MG.
  2. CYMBALTA [Concomitant]
  3. LEVETIRACETAM [Concomitant]
  4. SYNTHROID [Concomitant]
  5. LIPITOR [Concomitant]
  6. TOPAMAX [Concomitant]
  7. CLONAZEPAM [Concomitant]
  8. NAPROXEN [Concomitant]
  9. MIRTAZAPINE [Concomitant]

REACTIONS (1)
  - IRRITABILITY [None]
